FAERS Safety Report 7491678-7 (Version None)
Quarter: 2011Q2

REPORT INFORMATION
  Report Type: 
  Country: None (occurrence: None)
  Receive Date: 20110519
  Receipt Date: 20110419
  Transmission Date: 20111010
  Serious: No
  Sender: FDA-Public Use
  Company Number: US-BAYER-2011-034902

PATIENT
  Age: 28 Year
  Sex: Female
  Weight: 68 kg

DRUGS (2)
  1. VENLAFAXINE [Concomitant]
  2. ALEVE (CAPLET) [Suspect]
     Dosage: 1320 MG, ONCE
     Route: 048
     Dates: start: 20110419

REACTIONS (4)
  - PARAESTHESIA [None]
  - DIZZINESS [None]
  - VOMITING [None]
  - SOMNOLENCE [None]
